FAERS Safety Report 4829177-0 (Version None)
Quarter: 2005Q4

REPORT INFORMATION
  Report Type: 
  Country: None (occurrence: None)
  Receive Date: 20051028
  Receipt Date: 20050720
  Transmission Date: 20060501
  Serious: No
  Sender: FDA-Public Use
  Company Number: COT_0146_2005

PATIENT
  Age: 43 Year
  Sex: Male
  Weight: 60.782 kg

DRUGS (14)
  1. VENTAVIS [Suspect]
     Indication: PULMONARY HYPERTENSION
     Dosage: 2.5 MCG ONCE IH
     Route: 055
     Dates: start: 20050719, end: 20050719
  2. VENTAVIS [Suspect]
     Indication: PULMONARY HYPERTENSION
     Dosage: 5 MCG 6XD IH
     Route: 055
     Dates: start: 20050719
  3. ALDACTONE [Concomitant]
  4. PROTONIX [Concomitant]
  5. DIGOXIN [Concomitant]
  6. TRACLEER [Concomitant]
  7. THEOPHYLLINE [Concomitant]
  8. COUMADIN [Concomitant]
  9. SILDENAFIL [Concomitant]
  10. AMARYL [Concomitant]
  11. ADVAIR DISKUS 100/50 [Concomitant]
  12. ZYRTEC [Concomitant]
  13. DUONEB [Concomitant]
  14. ASCORBIC ACID [Concomitant]

REACTIONS (4)
  - HEADACHE [None]
  - HEART RATE INCREASED [None]
  - INCREASED UPPER AIRWAY SECRETION [None]
  - RHINORRHOEA [None]
